FAERS Safety Report 6939225-X (Version None)
Quarter: 2010Q3

REPORT INFORMATION
  Report Type: 
  Country: None (occurrence: None)
  Receive Date: 20100824
  Receipt Date: 20100802
  Transmission Date: 20110219
  Serious: Yes (Hospitalization)
  Sender: FDA-Public Use
  Company Number: US-BAYER-200943662NA

PATIENT
  Age: 19 Year
  Sex: Female
  Weight: 54 kg

DRUGS (3)
  1. YASMIN [Suspect]
     Indication: ORAL CONTRACEPTION
     Route: 048
     Dates: start: 20070101, end: 20080101
  2. IMODIUM [Concomitant]
     Indication: GASTROENTERITIS VIRAL
     Dates: start: 20071227
  3. PEPTO BISMOL [Concomitant]
     Indication: GASTROENTERITIS VIRAL
     Dates: start: 20071227

REACTIONS (11)
  - ABDOMINAL PAIN [None]
  - ABDOMINAL PAIN UPPER [None]
  - ABDOMINAL TENDERNESS [None]
  - CHOLECYSTITIS CHRONIC [None]
  - DECREASED APPETITE [None]
  - GALLBLADDER CHOLESTEROLOSIS [None]
  - GASTROINTESTINAL MOTILITY DISORDER [None]
  - NAUSEA [None]
  - PAINFUL DEFAECATION [None]
  - RECTAL HAEMORRHAGE [None]
  - WEIGHT DECREASED [None]
